FAERS Safety Report 6727808-1 (Version None)
Quarter: 2010Q2

REPORT INFORMATION
  Report Type: 
  Country: None (occurrence: None)
  Receive Date: 20100512
  Receipt Date: 20100129
  Transmission Date: 20101027
  Serious: No
  Sender: FDA-Public Use
  Company Number: 1000011617

PATIENT
  Sex: Female

DRUGS (2)
  1. SAVELLA [Suspect]
     Dosage: ORAL
     Route: 048
  2. NORCO [Concomitant]

REACTIONS (1)
  - RASH [None]
